FAERS Safety Report 8216279-4 (Version None)
Quarter: 2012Q1

REPORT INFORMATION
  Report Type: 
  Country: None (occurrence: None)
  Receive Date: 20120316
  Receipt Date: 20120307
  Transmission Date: 20120608
  Serious: Yes (Other)
  Sender: FDA-Public Use
  Company Number: PHHY2012DE021411

PATIENT
  Age: 71 Year
  Sex: Female

DRUGS (3)
  1. CALCIUM [Concomitant]
     Dosage: 1000 MG, DAILY
  2. ZOLEDRONOC ACID [Suspect]
     Indication: BREAST CANCER
     Dosage: 4 MG PER 250 ML, EVERY FOUR WEEKS
     Route: 042
  3. VITAMIN D [Concomitant]
     Dosage: 800 IU, DAILY

REACTIONS (2)
  - STRESS FRACTURE [None]
  - PAIN IN EXTREMITY [None]
